FAERS Safety Report 5038080-5 (Version None)
Quarter: 2006Q2

REPORT INFORMATION
  Report Type: 
  Country: None (occurrence: None)
  Receive Date: 20060602
  Receipt Date: 20060207
  Transmission Date: 20061013
  Serious: No
  Sender: FDA-Public Use
  Company Number: US200602001417

PATIENT
  Sex: Male

DRUGS (3)
  1. ALIMTA [Suspect]
     Indication: LUNG NEOPLASM MALIGNANT
     Dates: start: 20051001
  2. NEULASTA [Concomitant]
  3. ARANESP [Concomitant]

REACTIONS (4)
  - BACK PAIN [None]
  - BONE PAIN [None]
  - FATIGUE [None]
  - RED BLOOD CELL COUNT DECREASED [None]
